FAERS Safety Report 14195193 (Version 6)
Quarter: 2018Q2

REPORT INFORMATION
  Report Type: Spontaneous
  Country: DE (occurrence: DE)
  Receive Date: 20171116
  Receipt Date: 20180502
  Transmission Date: 20180711
  Serious: Yes (Other)
  Sender: FDA-Public Use
  Company Number: DE-PFIZER INC-2017485349

PATIENT
  Age: 47 Year
  Sex: Female
  Weight: 84 kg

DRUGS (7)
  1. DEKRISTOL [Concomitant]
     Active Substance: CHOLECALCIFEROL
     Dosage: UNK
  2. CERAZETTE (DESOGESTREL) [Concomitant]
     Active Substance: DESOGESTREL
     Dosage: UNK
  3. SATIVEX [Concomitant]
     Active Substance: NABIXIMOLS
     Dosage: UNK
     Route: 065
  4. GILENYA [Suspect]
     Active Substance: FINGOLIMOD HYDROCHLORIDE
     Indication: MULTIPLE SCLEROSIS
     Dosage: 0.5 MG, DAILY
     Route: 048
     Dates: start: 20161008, end: 20170730
  5. TOLPERISONE [Suspect]
     Active Substance: TOLPERISONE
     Indication: MUSCLE SPASTICITY
     Dosage: 200 MG, 1X/DAY
     Route: 048
     Dates: start: 201202, end: 201708
  6. PREGABALIN. [Suspect]
     Active Substance: PREGABALIN
     Indication: NEURALGIA
     Dosage: 125 MG, 2X/DAY
     Route: 048
     Dates: start: 201507
  7. NOVAMIN /06276704/ [Concomitant]
     Active Substance: METAMIZOLE SODIUM
     Indication: PAIN
     Dosage: 500 MG, AS NEEDED
     Route: 048
     Dates: start: 201202, end: 201708

REACTIONS (9)
  - Cholelithiasis [Unknown]
  - Red blood cell count increased [Unknown]
  - Drug-induced liver injury [Recovered/Resolved]
  - Blood cholesterol increased [Unknown]
  - Hepatic enzyme increased [Recovered/Resolved]
  - Blood triglycerides increased [Unknown]
  - Ultrasound biliary tract abnormal [Unknown]
  - Uterine leiomyoma [Unknown]
  - White blood cell count increased [Unknown]

NARRATIVE: CASE EVENT DATE: 2016
